FAERS Safety Report 25664978 (Version 1)
Quarter: 2025Q3

REPORT INFORMATION
  Report Type: Spontaneous
  Country: CH (occurrence: CH)
  Receive Date: 20250811
  Receipt Date: 20250811
  Transmission Date: 20251020
  Serious: Yes (Other)
  Sender: Karo Pharma
  Company Number: CH-Karo Pharma-2182245

PATIENT
  Age: 47 Year
  Sex: Male

DRUGS (2)
  1. TERBINAFINE [Suspect]
     Active Substance: TERBINAFINE
     Indication: Onychomycosis
     Dates: start: 20220520, end: 20220617
  2. IBUPROFEN [Suspect]
     Active Substance: IBUPROFEN

REACTIONS (1)
  - Drug-induced liver injury [Recovered/Resolved]

NARRATIVE: CASE EVENT DATE: 20220620
